FAERS Safety Report 5813369-8 (Version None)
Quarter: 2008Q3

REPORT INFORMATION
  Report Type: 
  Country: None (occurrence: None)
  Receive Date: 20080714
  Receipt Date: 20080707
  Transmission Date: 20090109
  Serious: Yes (Other)
  Sender: FDA-Public Use
  Company Number: 2008AL007981

PATIENT
  Sex: Male

DRUGS (1)
  1. DIGOXIN [Suspect]
     Indication: CARDIAC FAILURE CONGESTIVE

REACTIONS (8)
  - ALTERED VISUAL DEPTH PERCEPTION [None]
  - ANOREXIA [None]
  - DIZZINESS [None]
  - MULTIPLE INJURIES [None]
  - NAUSEA [None]
  - PALPITATIONS [None]
  - THERAPEUTIC AGENT TOXICITY [None]
  - VISION BLURRED [None]
